FAERS Safety Report 24877262 (Version 2)
Quarter: 2025Q1

REPORT INFORMATION
  Report Type: Spontaneous
  Country: US (occurrence: US)
  Receive Date: 20250123
  Receipt Date: 20250205
  Transmission Date: 20250408
  Serious: Yes (Life-Threatening, Hospitalization, Other)
  Sender: ALKEM
  Company Number: None

PATIENT
  Age: 17 Year
  Sex: Female
  Weight: 103 kg

DRUGS (4)
  1. AMLODIPINE BESYLATE [Suspect]
     Active Substance: AMLODIPINE BESYLATE
     Indication: Product used for unknown indication
     Route: 048
  2. IBUPROFEN [Suspect]
     Active Substance: IBUPROFEN
     Indication: Product used for unknown indication
     Route: 065
  3. AMOXICILLIN [Suspect]
     Active Substance: AMOXICILLIN
     Indication: Product used for unknown indication
     Route: 065
  4. ACETAMINOPHEN [Suspect]
     Active Substance: ACETAMINOPHEN
     Indication: Product used for unknown indication
     Route: 065

REACTIONS (15)
  - Cerebrovascular accident [Recovering/Resolving]
  - Visual impairment [Unknown]
  - Acute kidney injury [Recovering/Resolving]
  - Circulatory collapse [Recovering/Resolving]
  - Pulmonary oedema [Recovering/Resolving]
  - Unresponsive to stimuli [Recovering/Resolving]
  - Vasoplegia syndrome [Recovering/Resolving]
  - Hypervolaemia [Recovering/Resolving]
  - Haemodynamic instability [Recovering/Resolving]
  - Seizure [Recovering/Resolving]
  - Infarction [Unknown]
  - Visual field defect [Recovering/Resolving]
  - Intentional overdose [Unknown]
  - Hypotension [Recovering/Resolving]
  - Toxicity to various agents [Recovering/Resolving]

NARRATIVE: CASE EVENT DATE: 20210701
